FAERS Safety Report 6079792-4 (Version None)
Quarter: 2009Q1

REPORT INFORMATION
  Report Type: 
  Country: None (occurrence: None)
  Receive Date: 20090217
  Receipt Date: 20090114
  Transmission Date: 20090719
  Serious: No
  Sender: FDA-Public Use
  Company Number: US-BAYER-200911307NA

PATIENT
  Sex: Female

DRUGS (1)
  1. MIRENA [Suspect]
     Indication: ENDOMETRIOSIS
     Route: 015
     Dates: start: 20081001

REACTIONS (4)
  - ARTHRITIS [None]
  - JOINT STIFFNESS [None]
  - MOOD ALTERED [None]
  - VAGINAL HAEMORRHAGE [None]
